FAERS Safety Report 4708550-5 (Version None)
Quarter: 2005Q3

REPORT INFORMATION
  Report Type: 
  Country: None (occurrence: None)
  Receive Date: 20050707
  Receipt Date: 20050701
  Transmission Date: 20060218
  Serious: Yes (Hospitalization, Other)
  Sender: FDA-Public Use
  Company Number: RU-GLAXOSMITHKLINE-B0386771A

PATIENT
  Age: 56 Year
  Sex: Female
  Weight: 80 kg

DRUGS (1)
  1. VALTREX [Suspect]
     Indication: HERPES SIMPLEX
     Dosage: 1000MG PER DAY
     Route: 048
     Dates: start: 20041007, end: 20041008

REACTIONS (7)
  - ASTHENIA [None]
  - CEREBRAL CIRCULATORY FAILURE [None]
  - DIZZINESS [None]
  - NAUSEA [None]
  - PALLOR [None]
  - SPEECH DISORDER [None]
  - SYNCOPE [None]
